FAERS Safety Report 24404734 (Version 1)
Quarter: 2024Q4

REPORT INFORMATION
  Report Type: Report from Study
  Country: US (occurrence: US)
  Receive Date: 20241007
  Receipt Date: 20241007
  Transmission Date: 20250115
  Serious: No
  Sender: ROCHE
  Company Number: US-ROCHE-3528474

PATIENT
  Age: 25 Year
  Sex: Female

DRUGS (9)
  1. GAZYVA [Suspect]
     Active Substance: OBINUTUZUMAB
     Indication: Lupus nephritis
     Dosage: REPEAT IN EVERY 6 MONTHS
     Route: 042
  2. CYCLOSPORINE [Concomitant]
     Active Substance: CYCLOSPORINE
  3. MYCOPHENOLIC ACID [Concomitant]
     Active Substance: MYCOPHENOLIC ACID
  4. ACETAMINOPHEN [Concomitant]
     Active Substance: ACETAMINOPHEN
  5. CALCIUM GLUCONATE [Concomitant]
     Active Substance: CALCIUM GLUCONATE
  6. CHOLECALCIFEROL [Concomitant]
     Active Substance: CHOLECALCIFEROL
  7. FAMOTIDINE [Concomitant]
     Active Substance: FAMOTIDINE
  8. LISINOPRIL [Concomitant]
     Active Substance: LISINOPRIL
  9. TRETINOIN [Concomitant]
     Active Substance: TRETINOIN

REACTIONS (2)
  - Off label use [Unknown]
  - No adverse event [Unknown]
